FAERS Safety Report 18479826 (Version 1)
Quarter: 2020Q4

REPORT INFORMATION
  Report Type: Spontaneous
  Country: US (occurrence: US)
  Receive Date: 20201109
  Receipt Date: 20201109
  Transmission Date: 20210114
  Serious: No
  Sender: FDA-Public Use
  Company Number: US-BAYER-2020-238624

PATIENT
  Age: 74 Year
  Sex: Male

DRUGS (2)
  1. ZEGERID OTC CAPSULES [Suspect]
     Active Substance: OMEPRAZOLE\SODIUM BICARBONATE
     Indication: GASTROINTESTINAL DISORDER
     Dosage: 4 DF, QD
     Route: 048
     Dates: start: 202009
  2. SERENOA REPENS [Concomitant]
     Active Substance: SERENOA REPENS WHOLE
     Dosage: UNK

REACTIONS (1)
  - Wrong technique in product usage process [Unknown]
